APPROVED DRUG PRODUCT: SOLIFENACIN SUCCINATE
Active Ingredient: SOLIFENACIN SUCCINATE
Strength: 5MG
Dosage Form/Route: TABLET;ORAL
Application: A205483 | Product #001
Applicant: AJANTA PHARMA LTD
Approved: May 20, 2019 | RLD: No | RS: No | Type: DISCN